FAERS Safety Report 4632668-9 (Version None)
Quarter: 2005Q2

REPORT INFORMATION
  Report Type: 
  Country: None (occurrence: None)
  Receive Date: 20050331
  Receipt Date: 20041011
  Transmission Date: 20051028
  Serious: Yes (Other)
  Sender: FDA-Public Use
  Company Number: 200414870BCC

PATIENT
  Age: 53 Year
  Sex: Female
  Weight: 74.3899 kg

DRUGS (8)
  1. ALEVE (CAPLET) [Suspect]
     Indication: INTERVERTEBRAL DISC PROTRUSION
     Dosage: 220 MG, OM, ORAL
     Route: 048
     Dates: start: 20041005
  2. ALEVE (CAPLET) [Suspect]
     Indication: LIGAMENT INJURY
     Dosage: 220 MG, OM, ORAL
     Route: 048
     Dates: start: 20041005
  3. ALEVE (CAPLET) [Suspect]
     Indication: PAIN
     Dosage: 220 MG, OM, ORAL
     Route: 048
     Dates: start: 20041005
  4. ULTRACET [Concomitant]
  5. METFORMIN [Concomitant]
  6. GLUCOTROL [Concomitant]
  7. SYNTHROID [Concomitant]
  8. DIOVAN [Concomitant]

REACTIONS (1)
  - HAEMATOCHEZIA [None]
